FAERS Safety Report 15792657 (Version 1)
Quarter: 2019Q1

REPORT INFORMATION
  Report Type: Report from Study
  Country: IT (occurrence: IT)
  Receive Date: 20190107
  Receipt Date: 20190107
  Transmission Date: 20190417
  Serious: Yes (Hospitalization)
  Sender: FDA-Public Use
  Company Number: IT-TEVA-2019-IT-994865

PATIENT

DRUGS (3)
  1. PREDNISONE. [Suspect]
     Active Substance: PREDNISONE
     Dosage: 40 MG/M2 DAILY; FROM DAY 1 TO DAY 45
     Route: 048
     Dates: start: 2004
  2. PREDNISONE. [Suspect]
     Active Substance: PREDNISONE
     Indication: ACUTE LYMPHOCYTIC LEUKAEMIA
     Dosage: 10 MG/M2 DAILY; LATER THE DOSE WAS INCREASED
     Route: 065
     Dates: start: 2004
  3. IMATINIB. [Suspect]
     Active Substance: IMATINIB MESYLATE
     Indication: ACUTE LYMPHOCYTIC LEUKAEMIA
     Dosage: 800 MILLIGRAM DAILY; FROM DAY 1 TO DAY 45
     Route: 065
     Dates: start: 2004

REACTIONS (1)
  - Hypofibrinogenaemia [Recovered/Resolved]
